FAERS Safety Report 6356127-0 (Version None)
Quarter: 2009Q3

REPORT INFORMATION
  Report Type: 
  Country: None (occurrence: None)
  Receive Date: 20090915
  Receipt Date: 20090716
  Transmission Date: 20100115
  Serious: No
  Sender: FDA-Public Use
  Company Number: US-BAYER-200927124NA

PATIENT
  Age: 25 Year
  Sex: Female

DRUGS (1)
  1. MIRENA [Suspect]
     Indication: DRUG USE FOR UNKNOWN INDICATION
     Dosage: CONTINUOUS DELIVERY
     Route: 015
     Dates: start: 20090610, end: 20090701

REACTIONS (2)
  - IUCD COMPLICATION [None]
  - PELVIC PAIN [None]
